FAERS Safety Report 4824238-4 (Version None)
Quarter: 2005Q4

REPORT INFORMATION
  Report Type: 
  Country: None (occurrence: None)
  Receive Date: 20051108
  Receipt Date: 20051026
  Transmission Date: 20060501
  Serious: Yes (Hospitalization, Other)
  Sender: FDA-Public Use
  Company Number: 2005142771

PATIENT
  Sex: Female
  Weight: 60.3284 kg

DRUGS (4)
  1. DETROL LA [Suspect]
     Indication: HYPERTONIC BLADDER
     Dosage: 2 MG (2 MG, 1 IN 1 D), ORAL
     Route: 048
     Dates: start: 20040101
  2. ISOBIDE (ISOSORBIDE) [Concomitant]
  3. DYAZIDE [Concomitant]
  4. NAMENDA [Concomitant]

REACTIONS (4)
  - BLINDNESS UNILATERAL [None]
  - DRUG INEFFECTIVE [None]
  - FOREIGN BODY SENSATION IN EYES [None]
  - OCULAR HYPERAEMIA [None]
